FAERS Safety Report 5150630-7 (Version None)
Quarter: 2006Q4

REPORT INFORMATION
  Report Type: 
  Country: None (occurrence: None)
  Receive Date: 20061108
  Receipt Date: 20061024
  Transmission Date: 20070319
  Serious: Yes (Other)
  Sender: FDA-Public Use
  Company Number: 2006EU002920

PATIENT
  Age: 63 Year
  Sex: Female

DRUGS (4)
  1. PROGRAF [Suspect]
     Indication: RENAL TRANSPLANT
     Dosage: 1 MG/KG, BID,
     Dates: start: 20030301, end: 20030101
  2. MYCOPHENOLATE MOFETIL [Suspect]
     Indication: RENAL TRANSPLANT
     Dosage: SEE IMAGE
  3. PREDNISONE TAB [Suspect]
     Indication: RENAL TRANSPLANT
     Dosage: SEE IMAGE
  4. SIMULECT [Suspect]
     Dosage: 20 MG,
     Dates: end: 20030101

REACTIONS (6)
  - KAPOSI'S SARCOMA [None]
  - KIDNEY TRANSPLANT REJECTION [None]
  - LYMPHADENOPATHY [None]
  - LYMPHOEDEMA [None]
  - PYREXIA [None]
  - SKIN HYPERPIGMENTATION [None]
